FAERS Safety Report 10046434 (Version 1)
Quarter: 2014Q1

REPORT INFORMATION
  Report Type: Spontaneous
  Country: US (occurrence: None)
  Receive Date: 20140328
  Receipt Date: 20140328
  Transmission Date: 20141002
  Serious: Yes (Life-Threatening, Hospitalization, Other)
  Sender: FDA-Public Use
  Company Number: None

PATIENT
  Age: 33 Year
  Sex: Male
  Weight: 68.04 kg

DRUGS (1)
  1. HGH-191 [Suspect]
     Indication: NUTRITIONAL SUPPLEMENTATION
     Dosage: 1 SCOOP
     Route: 048
     Dates: start: 20110301, end: 20140327

REACTIONS (5)
  - Product quality issue [None]
  - Feeling abnormal [None]
  - Convulsion [None]
  - Heart rate increased [None]
  - Brain hypoxia [None]
